FAERS Safety Report 4459086-0 (Version None)
Quarter: 2004Q3

REPORT INFORMATION
  Report Type: 
  Country: None (occurrence: None)
  Receive Date: 20040920
  Receipt Date: 20040920
  Transmission Date: 20050211
  Serious: Yes (Hospitalization)
  Sender: FDA-Public Use
  Company Number: None

PATIENT
  Age: 72 Year
  Sex: Male

DRUGS (9)
  1. HEPARIN [Suspect]
     Indication: ATRIAL FIBRILLATION
     Dosage: DRIP 250,000 UNIT /250ML
     Route: 042
     Dates: start: 20040510, end: 20040513
  2. WARFARIN SODIUM [Suspect]
     Dosage: 5MG /7.5 MG
  3. FUROSEMIDE [Concomitant]
  4. DILTIAZEM [Concomitant]
  5. SOTALOL HCL [Concomitant]
  6. BISACODYL [Concomitant]
  7. KCL TAB [Concomitant]
  8. METOPROLOL [Concomitant]
  9. FENTANYL [Concomitant]

REACTIONS (4)
  - ACTIVATED PARTIAL THROMBOPLASTIN TIME PROLONGED [None]
  - HAEMOGLOBIN DECREASED [None]
  - INTERNATIONAL NORMALISED RATIO DECREASED [None]
  - PROTHROMBIN TIME PROLONGED [None]
